FAERS Safety Report 9507651 (Version 1)
Quarter: 2013Q3

REPORT INFORMATION
  Report Type: Spontaneous
  Country: BR (occurrence: BR)
  Receive Date: 20130909
  Receipt Date: 20130909
  Transmission Date: 20140515
  Serious: Yes (Hospitalization, Other)
  Sender: FDA-Public Use
  Company Number: BR-SANOFI-AVENTIS-2013SA081450

PATIENT
  Age: 59 Year
  Sex: Male

DRUGS (3)
  1. CLIKSTAR [Suspect]
     Indication: DEVICE THERAPY
     Dates: start: 2012
  2. LANTUS [Suspect]
     Indication: DIABETES MELLITUS
     Dosage: DOSE INCREASED ON AN UNKNOWN DATE
     Route: 065
     Dates: start: 2012, end: 2013
  3. HUMALOG [Concomitant]
     Dates: start: 2013

REACTIONS (5)
  - Diabetic coma [Unknown]
  - Hyperglycaemia [Unknown]
  - Feeling abnormal [Unknown]
  - Dyspnoea [Unknown]
  - Hypoglycaemia [Unknown]
